FAERS Safety Report 8366261-1 (Version None)
Quarter: 2012Q2

REPORT INFORMATION
  Report Type: 
  Country: None (occurrence: None)
  Receive Date: 20120517
  Receipt Date: 20120511
  Transmission Date: 20120825
  Serious: Yes (Other)
  Sender: FDA-Public Use
  Company Number: PHHY2012BR030923

PATIENT
  Age: 63 Year
  Sex: Female

DRUGS (5)
  1. FLUOXETINE [Concomitant]
     Indication: DEPRESSION
     Dosage: 1 DF, DAILY
     Route: 048
  2. ARADOIS H [Concomitant]
     Indication: HYPERTENSION
     Dosage: 0.5 DF, DAILY
     Route: 048
  3. TRILEPTAL [Suspect]
     Indication: ABNORMAL BEHAVIOUR
     Dosage: 1 DF DAILY
     Route: 048
  4. PANTOPRAZOLE [Concomitant]
     Indication: GASTRITIS
     Dosage: 1 DF, DAILY
     Route: 048
  5. OMEGA                                   /ARG/ [Concomitant]
     Indication: MEMORY IMPAIRMENT
     Dosage: 6 DF, DAILY
     Route: 048

REACTIONS (13)
  - TENDON RUPTURE [None]
  - CYST [None]
  - PREMENSTRUAL SYNDROME [None]
  - CHONDROPATHY [None]
  - ARTHRALGIA [None]
  - MENISCUS LESION [None]
  - ABNORMAL BEHAVIOUR [None]
  - ARTHROPATHY [None]
  - FEELING ABNORMAL [None]
  - BURSITIS [None]
  - TENDONITIS [None]
  - IRRITABILITY [None]
  - PAIN IN EXTREMITY [None]
